FAERS Safety Report 20442400 (Version 1)
Quarter: 2022Q1

REPORT INFORMATION
  Report Type: Spontaneous
  Country: JP (occurrence: JP)
  Receive Date: 20220208
  Receipt Date: 20220208
  Transmission Date: 20220423
  Serious: Yes (Other)
  Sender: FDA-Public Use
  Company Number: JP-NOVARTISPH-NVSJ2022JP002569

PATIENT
  Age: 70 Year
  Sex: Female

DRUGS (2)
  1. METHOTREXATE [Suspect]
     Active Substance: METHOTREXATE
     Indication: Rheumatoid arthritis
     Dosage: MORE THAN 10 YEARS OF USE
     Route: 048
  2. TACROLIMUS [Concomitant]
     Active Substance: TACROLIMUS
     Indication: Rheumatoid arthritis
     Dosage: MORE THAN 10 YEARS OF USE
     Route: 065

REACTIONS (6)
  - Osteonecrosis [Unknown]
  - Epstein Barr virus positive mucocutaneous ulcer [Recovering/Resolving]
  - Oral mucosal erythema [Recovering/Resolving]
  - Mouth swelling [Recovering/Resolving]
  - Gingival abscess [Recovering/Resolving]
  - Periodontitis [Unknown]

NARRATIVE: CASE EVENT DATE: 20200401
